FAERS Safety Report 4330159-6 (Version None)
Quarter: 2004Q2

REPORT INFORMATION
  Report Type: 
  Country: None (occurrence: None)
  Receive Date: 20040402
  Receipt Date: 20031211
  Transmission Date: 20050107
  Serious: Yes (Hospitalization)
  Sender: FDA-Public Use
  Company Number: GB-BRISTOL-MYERS SQUIBB COMPANY-12456323

PATIENT
  Age: 38 Year
  Sex: Male

DRUGS (3)
  1. APROVEL TABS [Suspect]
     Route: 048
  2. CYCLOSPORINE [Suspect]
  3. DOXAZOSIN MESYLATE [Suspect]

REACTIONS (2)
  - LARYNGEAL OEDEMA [None]
  - VOCAL CORD PARALYSIS [None]
